FAERS Safety Report 8798114 (Version 1)
Quarter: 2012Q4

REPORT INFORMATION
  Report Type: Spontaneous
  Country: US (occurrence: None)
  Receive Date: 20120913
  Receipt Date: 20120913
  Transmission Date: 20130627
  Serious: Yes (Death)
  Sender: FDA-Public Use
  Company Number: 1713747-2012-00003

PATIENT
  Age: 67 Year
  Sex: Male
  Weight: 129.28 kg

DRUGS (25)
  1. DELFLEX WITH DEXTROSE 2.5% [Suspect]
     Indication: RENAL FAILURE
     Dosage: /tx
     Route: 033
     Dates: start: 20100323, end: 20120803
  2. DELFLEX 1.5% DEX. LM/LC 5L [Concomitant]
  3. DELFLEX 4.25% DEX. LM/ LC 5L, 2-PK [Concomitant]
  4. FRESENIUS LIBERTY CYCLER [Concomitant]
  5. LIBERTY CYCLER SET [Concomitant]
  6. DUAL PATIENT CONNECT [Concomitant]
  7. ALLEARA 180MG [Concomitant]
  8. ASA 81MG [Concomitant]
  9. COUMADIN 2.5MG [Concomitant]
  10. COUMADIN 5MG [Concomitant]
  11. CRESTOR 40MG [Concomitant]
  12. DULCOLAX 5MG [Concomitant]
  13. HUMALOG 100UNIT/ML [Concomitant]
  14. HUMULIN N100UNIT/ML [Concomitant]
  15. LEVEMIR 100UNIT/ML [Concomitant]
  16. LORTAB 5-500MG [Concomitant]
  17. METOPROLOL 50MG [Concomitant]
  18. MIRALAX [Concomitant]
  19. NEURONTIN 300MG [Concomitant]
  20. PHOSLO 667MG [Concomitant]
  21. PRILOSEC 20MG [Concomitant]
  22. PROMETHAZINE 25MG/ML [Concomitant]
  23. SENSIPAR 30MG TAB [Concomitant]
  24. SORBITOL [Concomitant]
  25. STARLIX 60MG [Concomitant]

REACTIONS (2)
  - Sudden death [None]
  - Respiratory arrest [None]
